FAERS Safety Report 15849576 (Version 2)
Quarter: 2019Q1

REPORT INFORMATION
  Report Type: Spontaneous
  Country: US (occurrence: US)
  Receive Date: 20190121
  Receipt Date: 20190205
  Transmission Date: 20190417
  Serious: No
  Sender: FDA-Public Use
  Company Number: US-BAYER-2019-015866

PATIENT
  Age: 52 Year
  Sex: Female

DRUGS (3)
  1. CLIMARA [Suspect]
     Active Substance: ESTRADIOL
     Indication: INSOMNIA
     Dosage: UNK
     Route: 062
     Dates: start: 201812
  2. CLIMARA [Suspect]
     Active Substance: ESTRADIOL
     Indication: NIGHT SWEATS
  3. ESTRADIOL. [Suspect]
     Active Substance: ESTRADIOL
     Route: 062

REACTIONS (5)
  - Erythema [None]
  - Erythema [Not Recovered/Not Resolved]
  - Pruritus [None]
  - Pruritus [Not Recovered/Not Resolved]
  - Skin erosion [None]

NARRATIVE: CASE EVENT DATE: 201812
